FAERS Safety Report 6569062-X (Version None)
Quarter: 2010Q1

REPORT INFORMATION
  Report Type: 
  Country: None (occurrence: None)
  Receive Date: 20100203
  Receipt Date: 20100129
  Transmission Date: 20100710
  Serious: Yes (Death)
  Sender: FDA-Public Use
  Company Number: US-CELGENEUS-163-20785-09111620

PATIENT
  Sex: Male

DRUGS (4)
  1. THALOMID [Suspect]
     Indication: MULTIPLE MYELOMA
     Route: 048
     Dates: start: 20090901, end: 20090101
  2. THALOMID [Suspect]
     Route: 048
     Dates: start: 20090701
  3. THALOMID [Suspect]
     Route: 048
     Dates: start: 20050501
  4. THALOMID [Suspect]
     Route: 048
     Dates: start: 20050301

REACTIONS (2)
  - CARDIO-RESPIRATORY ARREST [None]
  - SEPSIS [None]
